FAERS Safety Report 4287598-1 (Version None)
Quarter: 2004Q1

REPORT INFORMATION
  Report Type: 
  Country: None (occurrence: None)
  Receive Date: 20040209
  Receipt Date: 20030802
  Transmission Date: 20041129
  Serious: No
  Sender: FDA-Public Use
  Company Number: US-GLAXOSMITHKLINE-A0419527A

PATIENT
  Sex: Male

DRUGS (3)
  1. PAXIL CR [Suspect]
     Dates: start: 20030701
  2. XANAX [Concomitant]
  3. DILANTIN [Concomitant]
     Dosage: 300MG PER DAY

REACTIONS (1)
  - ANXIETY [None]
